FAERS Safety Report 24451969 (Version 2)
Quarter: 2024Q4

REPORT INFORMATION
  Report Type: Report from Study
  Country: US (occurrence: US)
  Receive Date: 20241017
  Receipt Date: 20241105
  Transmission Date: 20250115
  Serious: Yes (Other)
  Sender: BAYER HEALTHCARE PHARMACEUTICALS INC.
  Company Number: US-BAYER-2024A149099

PATIENT
  Age: 64 Year
  Sex: Female

DRUGS (3)
  1. ADEMPAS [Suspect]
     Active Substance: RIOCIGUAT
     Indication: Pulmonary arterial hypertension
  2. ADEMPAS [Suspect]
     Active Substance: RIOCIGUAT
     Indication: Pulmonary arterial hypertension
     Dosage: 2.5 MG, TID
     Route: 048
     Dates: start: 202405
  3. PANTOPRAZOLE [Concomitant]
     Active Substance: PANTOPRAZOLE

REACTIONS (10)
  - Syncope [None]
  - Dyspnoea [None]
  - Dyspnoea exertional [None]
  - Chest pain [None]
  - Fatigue [None]
  - Dizziness [None]
  - Peripheral swelling [None]
  - Joint swelling [None]
  - Weight abnormal [None]
  - Pollakiuria [None]
